FAERS Safety Report 19713600 (Version 3)
Quarter: 2021Q3

REPORT INFORMATION
  Report Type: Spontaneous
  Country: TR (occurrence: TR)
  Receive Date: 20210817
  Receipt Date: 20210913
  Transmission Date: 20211014
  Serious: Yes (Hospitalization, Other)
  Sender: FDA-Public Use
  Company Number: TR-BAXTER-2021BAX024960

PATIENT
  Age: 63 Year
  Sex: Male

DRUGS (2)
  1. PHYSIONEAL 40 %2.27 CLEARFLEX PERITON DIYALIZ COZELTISI [Suspect]
     Active Substance: CALCIUM\DEXTROSE\MAGNESIUM\SODIUM BICARBONATE\SODIUM CHLORIDE\SODIUM LACTATE
     Indication: PERITONEAL DIALYSIS
     Route: 033
     Dates: end: 20210901
  2. EXTRANEAL [Suspect]
     Active Substance: CALCIUM CHLORIDE\ICODEXTRIN\MAGNESIUM CHLORIDE\SODIUM CHLORIDE\SODIUM LACTATE
     Indication: PERITONEAL DIALYSIS
     Route: 033
     Dates: end: 20210901

REACTIONS (6)
  - Bacterial disease carrier [Unknown]
  - COVID-19 [Unknown]
  - Abdominal pain [Recovered/Resolved]
  - Peritoneal cloudy effluent [Recovering/Resolving]
  - Bacterial infection [Recovering/Resolving]
  - Nosocomial infection [Recovering/Resolving]
